FAERS Safety Report 25484696 (Version 1)
Quarter: 2025Q2

REPORT INFORMATION
  Report Type: Spontaneous
  Country: US (occurrence: None)
  Receive Date: 20250627
  Receipt Date: 20250627
  Transmission Date: 20250717
  Serious: Yes (Other)
  Sender: FDA-CTU
  Company Number: None

PATIENT
  Age: 39 Year
  Sex: Male
  Weight: 75.36 kg

DRUGS (3)
  1. HALOPERIDOL [Suspect]
     Active Substance: HALOPERIDOL
     Indication: Aggression
     Dosage: FREQUENCY : AT BEDTIME;?
     Route: 048
     Dates: start: 20250409, end: 20250512
  2. BENZTROPINE [Concomitant]
     Active Substance: BENZTROPINE
  3. Cholecalciferol 50 mcg [Concomitant]

REACTIONS (4)
  - Tremor [None]
  - Tremor [None]
  - Adverse drug reaction [None]
  - Agitation [None]

NARRATIVE: CASE EVENT DATE: 20250512
